FAERS Safety Report 16685217 (Version 6)
Quarter: 2021Q2

REPORT INFORMATION
  Report Type: Report from Study
  Country: None (occurrence: FR)
  Receive Date: 20190808
  Receipt Date: 20210507
  Transmission Date: 20210716
  Serious: Yes (Other)
  Sender: FDA-Public Use
  Company Number: FR-ABBVIE-19S-056-2820738-00

PATIENT
  Age: 67 Year
  Sex: Female
  Weight: 49 kg

DRUGS (4)
  1. DUODOPA [Suspect]
     Active Substance: CARBIDOPA\LEVODOPA
     Indication: PRODUCT USED FOR UNKNOWN INDICATION
     Dosage: MD= 7 ML, ED= 2 ML, AND CFR DURING THE DAY = 3.4 ML/HOUR, EXTRA DOSE 2ML
     Route: 050
     Dates: start: 20180425
  2. DUODOPA [Suspect]
     Active Substance: CARBIDOPA\LEVODOPA
  3. FEMARA [Concomitant]
     Active Substance: LETROZOLE
     Indication: BREAST NEOPLASM
     Route: 048
     Dates: start: 202002
  4. COVID?19 VACCINE NOS. [Concomitant]
     Active Substance: COVID-19 VACCINE NOS
     Indication: COVID-19 IMMUNISATION
     Dosage: MODERNA
     Route: 030
     Dates: start: 20210422, end: 20210422

REACTIONS (11)
  - Fall [Unknown]
  - Eating disorder [Unknown]
  - Breast neoplasm [Not Recovered/Not Resolved]
  - Metastases to spine [Unknown]
  - Autonomic nervous system imbalance [Not Recovered/Not Resolved]
  - Orthostatic hypotension [Not Recovered/Not Resolved]
  - Jaw fracture [Unknown]
  - Metastases to bone [Unknown]
  - Metastasis [Unknown]
  - Metastases to thorax [Unknown]
  - Weight decreased [Unknown]

NARRATIVE: CASE EVENT DATE: 201907
